FAERS Safety Report 21894953 (Version 3)
Quarter: 2023Q1

REPORT INFORMATION
  Report Type: Report from Study
  Country: DE (occurrence: DE)
  Receive Date: 20230122
  Receipt Date: 20230330
  Transmission Date: 20230418
  Serious: Yes (Hospitalization)
  Sender: FDA-Public Use
  Company Number: DE-JNJFOC-20230134044

PATIENT
  Sex: Male
  Weight: 93 kg

DRUGS (5)
  1. DARATUMUMAB [Suspect]
     Active Substance: DARATUMUMAB
     Indication: Plasma cell myeloma
     Dosage: LAST DOSE BEFORE EVENT WAS ON 19-DEC-2022
     Route: 058
     Dates: start: 20221114
  2. BORTEZOMIB [Suspect]
     Active Substance: BORTEZOMIB
     Indication: Plasma cell myeloma
     Dosage: LAST DOSE BEFORE EVENT WAS ON 22-DEC-2022
     Route: 042
     Dates: start: 20221114
  3. THALIDOMIDE [Suspect]
     Active Substance: THALIDOMIDE
     Indication: Plasma cell myeloma
     Dosage: LAST DOSE BEFORE EVENT WAS ON 24-DEC-2022
     Route: 048
     Dates: start: 20221114
  4. DEXAMETHASONE [Suspect]
     Active Substance: DEXAMETHASONE
     Indication: Plasma cell myeloma
     Dosage: LAST DOSE BEFORE EVENT WAS ON 22-DEC-2022
     Route: 042
     Dates: start: 20221114
  5. DEXAMETHASONE [Suspect]
     Active Substance: DEXAMETHASONE
     Dosage: LAST DOSE BEFORE EVENT WAS ON 20-DEC-2022
     Route: 042
     Dates: start: 20221115

REACTIONS (1)
  - COVID-19 [Recovering/Resolving]

NARRATIVE: CASE EVENT DATE: 20221223
